FAERS Safety Report 26186070 (Version 1)
Quarter: 2025Q4

REPORT INFORMATION
  Report Type: Spontaneous
  Country: GB (occurrence: GB)
  Receive Date: 20251222
  Receipt Date: 20251222
  Transmission Date: 20260118
  Serious: Yes (Other)
  Sender: AUROBINDO
  Company Number: GB-TAKEDA-2017MPI009741

PATIENT
  Age: 72 Year
  Sex: Male

DRUGS (4)
  1. LENALIDOMIDE [Suspect]
     Active Substance: LENALIDOMIDE
     Indication: Product used for unknown indication
     Dosage: UNK
     Route: 065
  2. DEXAMETHASONE [Suspect]
     Active Substance: DEXAMETHASONE
     Indication: Product used for unknown indication
     Dosage: UNK
     Route: 065
  3. IXAZOMIB [Suspect]
     Active Substance: IXAZOMIB
     Indication: Product used for unknown indication
     Dosage: UNK
     Route: 065
  4. WARFARIN [Concomitant]
     Active Substance: WARFARIN
     Indication: Atrial fibrillation
     Dosage: UNK
     Route: 065

REACTIONS (16)
  - Thrombocytopenia [Not Recovered/Not Resolved]
  - Hyperkalaemia [Unknown]
  - Neutropenia [Unknown]
  - Incontinence [Unknown]
  - Haemoglobin abnormal [Unknown]
  - Confusional state [Unknown]
  - Epistaxis [Unknown]
  - Light chain analysis increased [Unknown]
  - Contusion [Unknown]
  - Lethargy [Unknown]
  - Fatigue [Unknown]
  - Peripheral swelling [Unknown]
  - Hypernatraemia [Unknown]
  - Rash [Unknown]
  - Influenza [Recovering/Resolving]
  - Nasopharyngitis [Recovering/Resolving]

NARRATIVE: CASE EVENT DATE: 20171120
